FAERS Safety Report 7517089-3 (Version None)
Quarter: 2011Q2

REPORT INFORMATION
  Report Type: 
  Country: None (occurrence: None)
  Receive Date: 20110601
  Receipt Date: 20110520
  Transmission Date: 20111010
  Serious: Yes (Other)
  Sender: FDA-Public Use
  Company Number: GB-UCBSA-031630

PATIENT
  Sex: Female
  Weight: 82.9 kg

DRUGS (12)
  1. CIMZIA [Suspect]
     Indication: RHEUMATOID ARTHRITIS
     Dosage: STANDARD DOSE
     Route: 058
     Dates: start: 20101014
  2. STEROID [Suspect]
     Dosage: HIGH STEROID USE
  3. OMEPRAZOLE [Concomitant]
     Route: 048
  4. BENDROFLUAZIDE [Concomitant]
     Dosage: 2.5 MG
  5. PREDNISOLONE [Concomitant]
     Indication: RHEUMATOID ARTHRITIS
     Dosage: AS NEEDED
     Route: 048
  6. AMLOSTIN [Concomitant]
  7. NAPROXEN [Concomitant]
     Indication: RHEUMATOID ARTHRITIS
     Dosage: AS NEEDED
     Route: 048
  8. CODEINE SULFATE [Concomitant]
     Indication: RHEUMATOID ARTHRITIS
     Dosage: AS NEEDED
     Route: 048
  9. CODEINE SULFATE [Concomitant]
  10. RAMIPRIL [Concomitant]
     Dosage: 10MG
  11. SIMVADOR [Concomitant]
     Dosage: 20 MG
  12. ALENDRONATE SODIUM [Concomitant]
     Indication: RHEUMATOID ARTHRITIS
     Dosage: 70 MG

REACTIONS (2)
  - ANAEMIA [None]
  - GASTROINTESTINAL CANDIDIASIS [None]
